FAERS Safety Report 21193108 (Version 1)
Quarter: 2022Q3

REPORT INFORMATION
  Report Type: Report from Study
  Country: IT (occurrence: IT)
  Receive Date: 20220810
  Receipt Date: 20220810
  Transmission Date: 20221027
  Serious: Yes (Hospitalization)
  Sender: FDA-Public Use
  Company Number: None

PATIENT
  Age: 9 Year
  Sex: Male
  Weight: 35 kg

DRUGS (6)
  1. METHOTREXATE (METHOTREXATE SODIUM) [Suspect]
     Active Substance: METHOTREXATE SODIUM
     Indication: Osteosarcoma
     Dosage: 14200 MILLIGRAM DAILY;  METOTRESSATO TEVA
     Dates: start: 20220610, end: 20220610
  2. METHOTREXATE (METHOTREXATE SODIUM) [Suspect]
     Active Substance: METHOTREXATE SODIUM
     Dosage: 13700 MILLIGRAM DAILY;  METOTRESSATO TEVA
     Dates: start: 20220708, end: 20220708
  3. DOXORUBICIN [Suspect]
     Active Substance: DOXORUBICIN
     Indication: Osteosarcoma
     Dosage: 85 MG IN 48 HOURS, DURATION : 2 DAYS
     Dates: start: 20220619, end: 20220621
  4. CISPLATIN [Suspect]
     Active Substance: CISPLATIN
     Indication: Osteosarcoma
     Dosage: 68 MILLIGRAM DAILY; 68 MG/DAY, FREQUENCY TIME 24 HRS, DURATION : 1 DAY
     Dates: start: 20220617, end: 20220618
  5. LEUCOVORIN CALCIUM [Concomitant]
     Active Substance: LEUCOVORIN CALCIUM
     Indication: Chemotherapy toxicity attenuation
     Dosage: 9 MG, DURATION : 2 DAYS
     Dates: start: 20220708, end: 20220710
  6. LEUCOVORIN CALCIUM [Concomitant]
     Active Substance: LEUCOVORIN CALCIUM
     Dosage: 36 MILLIGRAM DAILY; 9 MG EVERY 6 HOURS FOR 11 DOSES, DURATION : 2 DAYS
     Dates: start: 20220611, end: 20220613

REACTIONS (10)
  - Vomiting [Recovered/Resolved]
  - Dehydration [Recovered/Resolved]
  - Pancytopenia [Recovering/Resolving]
  - Gastroenteritis astroviral [Recovered/Resolved]
  - Anaemia [Not Recovered/Not Resolved]
  - Stomatitis [Recovered/Resolved]
  - Hyperglycaemia [Recovered/Resolved]
  - Diarrhoea [Recovered/Resolved]
  - Alanine aminotransferase increased [Recovered/Resolved]
  - Pyrexia [Recovered/Resolved]

NARRATIVE: CASE EVENT DATE: 20220612
